FAERS Safety Report 9548166 (Version 1)
Quarter: 2013Q3

REPORT INFORMATION
  Report Type: Spontaneous
  Country: US (occurrence: None)
  Receive Date: 20130710
  Receipt Date: 20130710
  Transmission Date: 20140515
  Serious: Yes (Other)
  Sender: FDA-Public Use
  Company Number: US-OR-12P1052739

PATIENT
  Age: 18 Year
  Sex: Male
  Weight: 65.77 kg

DRUGS (1)
  1. SOLODYN ER TABLET 80 MG ( TABLET) [Suspect]
     Indication: ACNE
     Dosage: 1 IN 1 D, ORAL
     Route: 048
     Dates: end: 2012

REACTIONS (11)
  - Pyrexia [None]
  - Pain [None]
  - Antinuclear antibody increased [None]
  - Alanine aminotransferase increased [None]
  - Fatigue [None]
  - Headache [None]
  - Nasal congestion [None]
  - Nausea [None]
  - Vomiting [None]
  - Night sweats [None]
  - Abdominal pain [None]
